FAERS Safety Report 13657581 (Version 1)
Quarter: 2017Q2

REPORT INFORMATION
  Report Type: Spontaneous
  Country: IT (occurrence: IT)
  Receive Date: 20170615
  Receipt Date: 20170615
  Transmission Date: 20170830
  Serious: Yes (Other)
  Sender: FDA-Public Use
  Company Number: PHHY2017IT084725

PATIENT
  Age: 25 Year
  Sex: Male

DRUGS (5)
  1. LUCEN [Suspect]
     Active Substance: ESOMEPRAZOLE
     Indication: RENAL COLIC
     Dosage: 1 DF, UNK
     Route: 048
     Dates: start: 20170412, end: 20170412
  2. LEVOFLOXACIN. [Suspect]
     Active Substance: LEVOFLOXACIN
     Indication: RENAL COLIC
     Dosage: 1 DF, UNK
     Route: 048
     Dates: start: 20170412, end: 20170412
  3. DICLOREUM [Suspect]
     Active Substance: DICLOFENAC SODIUM
     Indication: RENAL COLIC
     Dosage: 1 DF, UNK
     Route: 030
     Dates: start: 20170412, end: 20170412
  4. OMNIC [Suspect]
     Active Substance: TAMSULOSIN HYDROCHLORIDE
     Indication: RENAL COLIC
     Dosage: 1 DF, UNK
     Route: 048
     Dates: start: 20170412, end: 20170412
  5. BUSCOPAN [Concomitant]
     Active Substance: BUTYLSCOPOLAMINE BROMIDE
     Indication: RENAL COLIC
     Route: 065

REACTIONS (4)
  - Blister [Recovering/Resolving]
  - Erythema [Recovering/Resolving]
  - Dermatitis bullous [Recovering/Resolving]
  - Dyspnoea [Recovering/Resolving]

NARRATIVE: CASE EVENT DATE: 20170412
